FAERS Safety Report 14104110 (Version 1)
Quarter: 2017Q4

REPORT INFORMATION
  Report Type: Report from Study
  Country: US (occurrence: US)
  Receive Date: 20171018
  Receipt Date: 20171018
  Transmission Date: 20180321
  Serious: Yes (Hospitalization)
  Sender: FDA-Public Use
  Company Number: US-ALEXION-A201711164

PATIENT
  Sex: Female
  Weight: 58 kg

DRUGS (1)
  1. KANUMA [Suspect]
     Active Substance: SEBELIPASE ALFA
     Indication: LYSOSOMAL ACID LIPASE DEFICIENCY
     Route: 065

REACTIONS (11)
  - Splenomegaly [Unknown]
  - Pyrexia [Not Recovered/Not Resolved]
  - Infectious mononucleosis [Unknown]
  - Abdominal pain [Unknown]
  - Headache [Recovered/Resolved]
  - Vomiting [Unknown]
  - Liver function test increased [Unknown]
  - Nausea [Recovered/Resolved]
  - Hepatomegaly [Unknown]
  - Gallbladder disorder [Unknown]
  - Blood bilirubin increased [Unknown]

NARRATIVE: CASE EVENT DATE: 20170924
